FAERS Safety Report 9241046 (Version 1)
Quarter: 2013Q2

REPORT INFORMATION
  Report Type: Spontaneous
  Country: US (occurrence: US)
  Receive Date: 20130419
  Receipt Date: 20130419
  Transmission Date: 20140414
  Serious: Yes (Other)
  Sender: FDA-Public Use
  Company Number: US-BIOGENIDEC-2013BI034223

PATIENT
  Sex: Female

DRUGS (1)
  1. AVONEX [Suspect]
     Indication: MULTIPLE SCLEROSIS
     Route: 030
     Dates: start: 1997

REACTIONS (6)
  - Leukaemia [Unknown]
  - Convulsion [Not Recovered/Not Resolved]
  - Dysmenorrhoea [Recovered/Resolved]
  - Oedema [Unknown]
  - Influenza like illness [Recovered/Resolved]
  - Menorrhagia [Recovered/Resolved]
